FAERS Safety Report 22112320 (Version 1)
Quarter: 2023Q1

REPORT INFORMATION
  Report Type: Spontaneous
  Country: FR (occurrence: FR)
  Receive Date: 20230318
  Receipt Date: 20230318
  Transmission Date: 20230417
  Serious: Yes (Other)
  Sender: FDA-Public Use
  Company Number: FR-ALKEM LABORATORIES LIMITED-FR-ALKEM-2022-06782

PATIENT
  Age: 63 Year
  Sex: Female

DRUGS (14)
  1. DULOXETINE [Suspect]
     Active Substance: DULOXETINE
     Indication: Neuralgia
     Dosage: UNK
     Route: 065
     Dates: start: 20211119, end: 20211120
  2. GABAPENTIN [Suspect]
     Active Substance: GABAPENTIN
     Indication: Neuralgia
     Dosage: UNK
     Route: 065
     Dates: start: 2022, end: 2022
  3. DRONABINOL [Suspect]
     Active Substance: DRONABINOL
     Indication: Neuralgia
     Dosage: 5 MILLIGRAM
     Route: 065
     Dates: start: 2022
  4. DRONABINOL [Suspect]
     Active Substance: DRONABINOL
     Dosage: 2.5 MILLIGRAM
     Route: 065
     Dates: start: 2022, end: 20220917
  5. DRONABINOL [Suspect]
     Active Substance: DRONABINOL
     Dosage: 2.5 MILLIGRAM, ONCE A DAY (2.5 MILLIGRAM, ONCE DAILY)
     Route: 048
     Dates: start: 20220308
  6. DRONABINOL [Suspect]
     Active Substance: DRONABINOL
     Dosage: 2.5 MILLIGRAM (2.5 MILLIGRAM CAPSULE MOLLE)
     Route: 065
     Dates: start: 20220309, end: 202204
  7. DRONABINOL [Suspect]
     Active Substance: DRONABINOL
     Dosage: 5 MILLIGRAM, ONCE A DAY (5 MILLIGRAM, OD 2 CAPSULE)
     Route: 048
     Dates: start: 20220408, end: 202207
  8. DRONABINOL [Suspect]
     Active Substance: DRONABINOL
     Dosage: 5 MILLIGRAM (5 MILLIGRAM (IN 2 INTAKES) CAPSULE MOLLE)
     Route: 065
     Dates: start: 202206
  9. DRONABINOL [Suspect]
     Active Substance: DRONABINOL
     Dosage: 2.5 MILLIGRAM
     Route: 065
     Dates: start: 202207, end: 2022
  10. DRONABINOL [Suspect]
     Active Substance: DRONABINOL
     Dosage: 2.5 MILLIGRAM, ONCE A DAY (2.5 MILLIGRAM, OD (SOFT CAPSULE DAILY)
     Route: 065
     Dates: start: 20220916
  11. DRONABINOL [Suspect]
     Active Substance: DRONABINOL
     Dosage: 2.5 MILLIGRAM, TWO TIMES A DAY((2.5 MILLIGRAM, BID (SOFT CAPSULE)
     Route: 065
     Dates: start: 20220916
  12. DOLIPRANE [Concomitant]
     Active Substance: ACETAMINOPHEN
     Indication: Pain
     Dosage: 1 DOSAGE FORM/ IF NEEDED
     Route: 065
  13. LEVOCARNITINE [Concomitant]
     Active Substance: LEVOCARNITINE
     Indication: Myalgia
     Dosage: UNK
     Route: 065
  14. LEVOCARNITINE [Concomitant]
     Active Substance: LEVOCARNITINE
     Dosage: 2 DOSAGE FORM
     Route: 065
     Dates: start: 202207

REACTIONS (4)
  - Therapy interrupted [Unknown]
  - Supraventricular tachycardia [Unknown]
  - Weight increased [Not Recovered/Not Resolved]
  - Treatment failure [Unknown]

NARRATIVE: CASE EVENT DATE: 20220308
